FAERS Safety Report 7524499-7 (Version None)
Quarter: 2011Q2

REPORT INFORMATION
  Report Type: 
  Country: None (occurrence: None)
  Receive Date: 20110606
  Receipt Date: 20110523
  Transmission Date: 20111010
  Serious: Yes (Hospitalization, Other)
  Sender: FDA-Public Use
  Company Number: US-BAYER-2010-006384

PATIENT
  Sex: Female

DRUGS (5)
  1. VALIUM NOVUM [Concomitant]
  2. BETASERON [Suspect]
     Indication: MULTIPLE SCLEROSIS
     Dosage: UNK
     Dates: start: 20060101, end: 20090101
  3. BACLOFEN [Concomitant]
  4. ANALGESICS [Concomitant]
  5. ^SNIT-REJECTION^ MEDICATION [Concomitant]

REACTIONS (12)
  - WHITE BLOOD CELL COUNT DECREASED [None]
  - NEOPLASM [None]
  - DEPRESSED MOOD [None]
  - PYREXIA [None]
  - FEAR OF NEEDLES [None]
  - LYME DISEASE [None]
  - VOMITING [None]
  - JOINT SWELLING [None]
  - INJECTION SITE PAIN [None]
  - DRUG HYPERSENSITIVITY [None]
  - WEIGHT DECREASED [None]
  - BLOOD PRESSURE DECREASED [None]
